FAERS Safety Report 19103656 (Version 3)
Quarter: 2021Q2

REPORT INFORMATION
  Report Type: Report from Study
  Country: CA (occurrence: CA)
  Receive Date: 20210407
  Receipt Date: 20210517
  Transmission Date: 20210717
  Serious: Yes (Hospitalization, Other)
  Sender: FDA-Public Use
  Company Number: CA-TAKEDA-2021TUS020416

PATIENT
  Age: 50 Year
  Sex: Female

DRUGS (2)
  1. VEDOLIZUMAB [Suspect]
     Active Substance: VEDOLIZUMAB
     Indication: COLITIS ULCERATIVE
     Dosage: 300 MILLIGRAM
     Route: 042
     Dates: start: 20210326
  2. ASACOL [Concomitant]
     Active Substance: MESALAMINE
     Dosage: UNK
     Dates: start: 202009

REACTIONS (7)
  - Fatigue [Unknown]
  - Blood pressure decreased [Unknown]
  - Muscular weakness [Unknown]
  - Balance disorder [Unknown]
  - Nausea [Unknown]
  - Haematochezia [Unknown]
  - Colitis ulcerative [Unknown]
